FAERS Safety Report 13597407 (Version 1)
Quarter: 2017Q2

REPORT INFORMATION
  Report Type: Spontaneous
  Country: US (occurrence: US)
  Receive Date: 20170531
  Receipt Date: 20170531
  Transmission Date: 20170830
  Serious: No
  Sender: FDA-Public Use
  Company Number: US-GLAXOSMITHKLINE-US2017078776

PATIENT
  Sex: Female

DRUGS (2)
  1. RANITIDINE HYDROCHLORIDE TABLET [Suspect]
     Active Substance: RANITIDINE HYDROCHLORIDE
     Indication: GASTROINTESTINAL DISORDER
  2. ZANTAC [Suspect]
     Active Substance: RANITIDINE HYDROCHLORIDE
     Indication: GASTROINTESTINAL DISORDER

REACTIONS (3)
  - Overdose [Unknown]
  - Product substitution issue [Unknown]
  - Drug ineffective [Unknown]
